FAERS Safety Report 21257883 (Version 3)
Quarter: 2022Q4

REPORT INFORMATION
  Report Type: Spontaneous
  Country: BR (occurrence: BR)
  Receive Date: 20220826
  Receipt Date: 20221026
  Transmission Date: 20230112
  Serious: Yes (Other)
  Sender: FDA-Public Use
  Company Number: BR-NOVARTISPH-NVSC2022BR190222

PATIENT
  Sex: Female
  Weight: 66 kg

DRUGS (2)
  1. ZOLPIDEM TARTRATE [Suspect]
     Active Substance: ZOLPIDEM TARTRATE
     Indication: Sleep disorder
     Dosage: UNK
     Route: 065
  2. ZOLPIDEM TARTRATE [Suspect]
     Active Substance: ZOLPIDEM TARTRATE
     Dosage: 10 MG, QD (AT NIGHT)
     Route: 048

REACTIONS (7)
  - Hallucination [Unknown]
  - Insomnia [Unknown]
  - Diplopia [Unknown]
  - Intentional product use issue [Unknown]
  - Overdose [Unknown]
  - Amnesia [Unknown]
  - Drug ineffective [Unknown]
